FAERS Safety Report 4995814-3 (Version None)
Quarter: 2006Q2

REPORT INFORMATION
  Report Type: 
  Country: None (occurrence: None)
  Receive Date: 20060504
  Receipt Date: 20060418
  Transmission Date: 20061013
  Serious: Yes (Life-Threatening)
  Sender: FDA-Public Use
  Company Number: S06-FIN-01338-01

PATIENT
  Age: 25 Year
  Sex: Female

DRUGS (7)
  1. CITALOPRAM HYDROBROMIDE [Suspect]
     Indication: PANIC DISORDER
     Dosage: 20 MG QD PO
     Route: 048
  2. ANTIBIOTIC [Concomitant]
  3. CORTICOSTEROID [Concomitant]
  4. CELESTONE CHRONODOSE [Concomitant]
  5. METRONIDATSOLE (METRONIDAZOLE) [Concomitant]
  6. CEFUROXIME [Concomitant]
  7. ADALAT [Concomitant]

REACTIONS (7)
  - DRUG EXPOSURE DURING PREGNANCY [None]
  - HAEMATOCRIT INCREASED [None]
  - HAEMOGLOBIN DECREASED [None]
  - INFECTION [None]
  - PLATELET COUNT INCREASED [None]
  - PREGNANCY [None]
  - PREMATURE LABOUR [None]
